FAERS Safety Report 20125279 (Version 2)
Quarter: 2022Q2

REPORT INFORMATION
  Report Type: Spontaneous
  Country: US (occurrence: US)
  Receive Date: 20211129
  Receipt Date: 20220404
  Transmission Date: 20220721
  Serious: No
  Sender: FDA-Public Use
  Company Number: US-PFIZER INC-202101128423

PATIENT
  Age: 65 Year
  Sex: Female

DRUGS (1)
  1. ATORVASTATIN CALCIUM [Suspect]
     Active Substance: ATORVASTATIN CALCIUM
     Indication: Blood cholesterol increased
     Dosage: 20 MG

REACTIONS (3)
  - Chest pain [Recovered/Resolved]
  - Chest discomfort [Unknown]
  - Dyspnoea [Unknown]
